FAERS Safety Report 10341203 (Version 2)
Quarter: 2014Q3

REPORT INFORMATION
  Report Type: Spontaneous
  Country: JP (occurrence: JP)
  Receive Date: 20140725
  Receipt Date: 20140818
  Transmission Date: 20150326
  Serious: No
  Sender: FDA-Public Use
  Company Number: JP-ROCHE-1440278

PATIENT
  Age: 56 Year
  Sex: Male

DRUGS (4)
  1. LUCENTIS [Suspect]
     Active Substance: RANIBIZUMAB
     Indication: RETINAL VEIN OCCLUSION
     Route: 050
     Dates: start: 20140704
  2. TAZIN (JAPAN) [Concomitant]
     Route: 065
     Dates: start: 20140603
  3. KALLIDINOGENASE [Concomitant]
     Active Substance: KALLIDINOGENASE
     Route: 065
     Dates: start: 20140603
  4. LUCENTIS [Suspect]
     Active Substance: RANIBIZUMAB
     Indication: MACULAR OEDEMA

REACTIONS (1)
  - Dizziness postural [Recovered/Resolved]

NARRATIVE: CASE EVENT DATE: 20140707
